FAERS Safety Report 6112197-6 (Version None)
Quarter: 2009Q1

REPORT INFORMATION
  Report Type: 
  Country: None (occurrence: None)
  Receive Date: 20090310
  Receipt Date: 20090223
  Transmission Date: 20090719
  Serious: Yes (Hospitalization)
  Sender: FDA-Public Use
  Company Number: 2009S1003227

PATIENT
  Age: 85 Year
  Sex: Female

DRUGS (13)
  1. FENTANYL TRANSDERMAL SYSTEM [Suspect]
     Indication: PAIN
     Dosage: 25 UG; EVERY HOUR; TRANSDERMAL; EVERY HOUR; TRANSDERMA; EVERY HOUR;; TRANSDERMAL
     Route: 062
     Dates: start: 20090218, end: 20090221
  2. FENTANYL TRANSDERMAL SYSTEM [Suspect]
     Indication: PAIN
     Dosage: 25 UG; EVERY HOUR; TRANSDERMAL; EVERY HOUR; TRANSDERMA; EVERY HOUR;; TRANSDERMAL
     Route: 062
     Dates: start: 20090221
  3. FENTANYL TRANSDERMAL SYSTEM [Suspect]
     Indication: PAIN
     Dosage: 100 UG; EVERY HOUR; TRANSDERMAL; EVERY HOUR; TRANSDERMAL; 100 UG;EVERY HOUR; TRANSDERMAL
     Route: 062
     Dates: start: 20090218, end: 20090221
  4. FENTANYL TRANSDERMAL SYSTEM [Suspect]
     Indication: PAIN
     Dosage: 100 UG; EVERY HOUR; TRANSDERMAL; EVERY HOUR; TRANSDERMAL; 100 UG;EVERY HOUR; TRANSDERMAL
     Route: 062
     Dates: start: 20090221
  5. AMLODIPINE (CON.) [Concomitant]
  6. CYMBALTA (CON.) [Concomitant]
  7. DIAZEPAM (CON.) [Concomitant]
  8. HYDROMORPHONE (CON.) [Concomitant]
  9. LYRICA (CON.) [Concomitant]
  10. MELOXICAM (CON.) [Concomitant]
  11. OMEPRAZOLE (CON.) [Concomitant]
  12. OXYBUTYNIN (CON.) [Concomitant]
  13. SENOKOT /00142201/ (CON.) [Concomitant]

REACTIONS (2)
  - INCORRECT DRUG ADMINISTRATION DURATION [None]
  - OVERDOSE [None]
